FAERS Safety Report 6617497-9 (Version None)
Quarter: 2010Q1

REPORT INFORMATION
  Report Type: 
  Country: None (occurrence: None)
  Receive Date: 20100302
  Receipt Date: 20100216
  Transmission Date: 20100710
  Serious: Yes (Other)
  Sender: FDA-Public Use
  Company Number: 20100077

PATIENT
  Age: 65 Year
  Sex: Male

DRUGS (5)
  1. BUPIVACAINE 0.5% [Suspect]
     Dosage: 30 ML
  2. EPINEPHRINE [Suspect]
     Dosage: OTHER
  3. FENTANYL [Suspect]
  4. MIDAZOLAM HCL [Suspect]
  5. CLONIDINE [Suspect]
     Dosage: 50 UG

REACTIONS (12)
  - BRACHIAL PLEXUS INJURY [None]
  - ELECTROMYOGRAM ABNORMAL [None]
  - HYPOTENSION [None]
  - MONOPARESIS [None]
  - MUSCLE ATROPHY [None]
  - MUSCULOSKELETAL PAIN [None]
  - NERVE CONDUCTION STUDIES ABNORMAL [None]
  - NEUROPATHY PERIPHERAL [None]
  - PAIN IN EXTREMITY [None]
  - PARAESTHESIA [None]
  - RADICULITIS BRACHIAL [None]
  - VIBRATION TEST ABNORMAL [None]
